FAERS Safety Report 10248224 (Version 1)
Quarter: 2014Q2

REPORT INFORMATION
  Report Type: Spontaneous
  Country: CA (occurrence: CA)
  Receive Date: 20140620
  Receipt Date: 20140620
  Transmission Date: 20141212
  Serious: Yes (Death, Hospitalization, Other)
  Sender: FDA-Public Use
  Company Number: CA-AMGEN INC.-CANSP2014045259

PATIENT
  Age: 78 Year
  Sex: Female

DRUGS (1)
  1. PROLIA [Suspect]
     Indication: OSTEOPOROSIS POSTMENOPAUSAL
     Dosage: 60 MG, UNK
     Route: 065
     Dates: start: 20101215

REACTIONS (6)
  - Wound infection [Fatal]
  - Pulmonary valve stenosis [Fatal]
  - Hypoxia [Fatal]
  - Weight decreased [Fatal]
  - Atrophy [Unknown]
  - Arthritis [Unknown]
